FAERS Safety Report 5318857-9 (Version None)
Quarter: 2007Q2

REPORT INFORMATION
  Report Type: 
  Country: None (occurrence: None)
  Receive Date: 20070508
  Receipt Date: 20070425
  Transmission Date: 20071010
  Serious: Yes (Life-Threatening)
  Sender: FDA-Public Use
  Company Number: JP-ROCHE-490377

PATIENT
  Age: 14 Year
  Sex: Male
  Weight: 43 kg

DRUGS (5)
  1. TAMIFLU [Suspect]
     Indication: INFLUENZA
     Route: 048
     Dates: start: 20070319, end: 20070319
  2. TAMIFLU [Suspect]
     Route: 048
     Dates: start: 20070319, end: 20070320
  3. BANAN [Concomitant]
     Route: 048
     Dates: start: 20070318, end: 20070320
  4. AZELASTINE HCL [Concomitant]
     Route: 048
     Dates: start: 20070318, end: 20070320
  5. LEFTOSE [Concomitant]
     Route: 048
     Dates: start: 20070318, end: 20070320

REACTIONS (1)
  - ABNORMAL BEHAVIOUR [None]
